FAERS Safety Report 25158317 (Version 1)
Quarter: 2025Q2

REPORT INFORMATION
  Report Type: Spontaneous
  Country: CZ (occurrence: CZ)
  Receive Date: 20250404
  Receipt Date: 20250404
  Transmission Date: 20250717
  Serious: Yes (Death, Other)
  Sender: BRISTOL MYERS SQUIBB
  Company Number: CZ-BRISTOL-MYERS SQUIBB COMPANY-2025-049178

PATIENT
  Age: 64 Year
  Sex: Female

DRUGS (2)
  1. OPDIVO [Suspect]
     Active Substance: NIVOLUMAB
     Indication: Epithelioid mesothelioma
  2. OPDIVO [Suspect]
     Active Substance: NIVOLUMAB
     Indication: Thymoma

REACTIONS (1)
  - Death [Fatal]
